FAERS Safety Report 5213130-1 (Version None)
Quarter: 2007Q1

REPORT INFORMATION
  Report Type: 
  Country: None (occurrence: None)
  Receive Date: 20070118
  Receipt Date: 20070118
  Transmission Date: 20070707
  Serious: No
  Sender: FDA-Public Use
  Company Number: None

PATIENT
  Sex: Male
  Weight: 102.0593 kg

DRUGS (2)
  1. NARDIL [Suspect]
     Indication: ANXIETY
     Dosage: 30 MG  2 X DAY  ORAL
     Route: 048
     Dates: start: 19950101
  2. NARDIL [Suspect]
     Indication: DEPRESSION
     Dosage: 30 MG  2 X DAY  ORAL
     Route: 048
     Dates: start: 19950101

REACTIONS (2)
  - DRUG EFFECT DECREASED [None]
  - PHARMACEUTICAL PRODUCT COMPLAINT [None]
